FAERS Safety Report 15897572 (Version 1)
Quarter: 2019Q1

REPORT INFORMATION
  Report Type: Spontaneous
  Country: FR (occurrence: FR)
  Receive Date: 20190131
  Receipt Date: 20190131
  Transmission Date: 20190417
  Serious: Yes (Hospitalization)
  Sender: FDA-Public Use
  Company Number: FR-ELI_LILLY_AND_COMPANY-FR201901010833

PATIENT
  Age: 48 Year
  Sex: Female
  Weight: 104 kg

DRUGS (4)
  1. LOPRAZOLAM [Suspect]
     Active Substance: LOPRAZOLAM
     Indication: INTENTIONAL OVERDOSE
     Dosage: 20 MG, UNKNOWN
     Route: 048
     Dates: start: 20180725, end: 20180725
  2. VORTIOXETINE HYDROBROMIDE [Suspect]
     Active Substance: VORTIOXETINE HYDROBROMIDE
     Indication: INTENTIONAL OVERDOSE
     Dosage: 840 MG, UNKNOWN
     Route: 048
     Dates: start: 20180725, end: 20180725
  3. PROPRANOLOL [Suspect]
     Active Substance: PROPRANOLOL HYDROCHLORIDE
     Indication: INTENTIONAL OVERDOSE
     Dosage: 4 G, UNKNOWN
     Route: 048
     Dates: start: 20180725, end: 20180725
  4. DULOXETINE HYDROCHLORIDE. [Suspect]
     Active Substance: DULOXETINE HYDROCHLORIDE
     Indication: INTENTIONAL OVERDOSE
     Dosage: 840 MG, UNKNOWN
     Route: 048
     Dates: start: 20180725, end: 20180725

REACTIONS (3)
  - Hypotension [Recovered/Resolved]
  - Mydriasis [Recovered/Resolved]
  - Overdose [Unknown]

NARRATIVE: CASE EVENT DATE: 20180725
